FAERS Safety Report 16826566 (Version 1)
Quarter: 2019Q3

REPORT INFORMATION
  Report Type: Spontaneous
  Country: US (occurrence: US)
  Receive Date: 20190919
  Receipt Date: 20190919
  Transmission Date: 20191005
  Serious: No
  Sender: FDA-Public Use
  Company Number: US-ALKERMES INC.-ALK-2019-004893

PATIENT

DRUGS (1)
  1. VIVITROL [Suspect]
     Active Substance: NALTREXONE
     Indication: SCHIZOPHRENIA
     Dosage: UNK
     Route: 030

REACTIONS (2)
  - Hallucination, auditory [Unknown]
  - Alcohol use [Unknown]
